FAERS Safety Report 6273811-8 (Version None)
Quarter: 2009Q3

REPORT INFORMATION
  Report Type: 
  Country: None (occurrence: None)
  Receive Date: 20090720
  Receipt Date: 20090713
  Transmission Date: 20100115
  Serious: Yes (Other)
  Sender: FDA-Public Use
  Company Number: B0584727A

PATIENT
  Sex: Female
  Weight: 47 kg

DRUGS (3)
  1. LAMICTAL [Suspect]
     Route: 048
     Dates: start: 20040101, end: 20090701
  2. RIVOTRIL [Concomitant]
     Route: 048
     Dates: start: 20081201
  3. CLOBAZAM [Concomitant]
     Route: 048
     Dates: start: 20090701

REACTIONS (2)
  - ANTICONVULSANT DRUG LEVEL DECREASED [None]
  - CONVULSION [None]
